FAERS Safety Report 6618503-8 (Version None)
Quarter: 2010Q1

REPORT INFORMATION
  Report Type: 
  Country: None (occurrence: None)
  Receive Date: 20100302
  Receipt Date: 20070517
  Transmission Date: 20100710
  Serious: Yes (Hospitalization)
  Sender: FDA-Public Use
  Company Number: 2009-2865

PATIENT
  Age: 75 Year
  Sex: Female

DRUGS (4)
  1. APOKYN [Suspect]
     Indication: PARKINSON'S DISEASE
     Dosage: (0.4 ML), SUBCUTANEOUS
     Route: 058
     Dates: start: 20070111, end: 20070306
  2. AZILECT (RASAGILINE MESYLATE) (RASAGILINE MESYLATE) [Concomitant]
  3. SINEMET 25/100 (SINEMET) (CARBIDOPA, LEVODOPA) [Concomitant]
  4. MIRAPEX (PRAMIPEXOLE DIHYDROCHLORIDE) (PRAMIPEXOLE DIHYDROCHLORIDE) [Concomitant]

REACTIONS (7)
  - DIZZINESS [None]
  - DRUG EFFECT DECREASED [None]
  - DYSKINESIA [None]
  - FALL [None]
  - HEADACHE [None]
  - HYPERHIDROSIS [None]
  - LOWER LIMB FRACTURE [None]
